FAERS Safety Report 12395078 (Version 1)
Quarter: 2016Q2

REPORT INFORMATION
  Report Type: Spontaneous
  Country: CZ (occurrence: CZ)
  Receive Date: 20160523
  Receipt Date: 20160523
  Transmission Date: 20160815
  Serious: Yes (Hospitalization)
  Sender: FDA-Public Use
  Company Number: CZ-WATSON-2016-10280

PATIENT
  Age: 72 Year
  Sex: Male

DRUGS (5)
  1. METFORMIN [Concomitant]
     Active Substance: METFORMIN HYDROCHLORIDE
     Indication: DIABETES MELLITUS
     Dosage: 750 MG, BID
     Route: 048
     Dates: start: 2013
  2. METFORMIN [Concomitant]
     Active Substance: METFORMIN HYDROCHLORIDE
     Dosage: 1700 MG, DAILY
     Route: 065
     Dates: start: 2004
  3. GLIMEPIRIDE (UNKNOWN) [Suspect]
     Active Substance: GLIMEPIRIDE
     Indication: TYPE 2 DIABETES MELLITUS
     Dosage: 1.5 MG, BID
     Route: 048
     Dates: start: 2013
  4. GLIMEPIRIDE (UNKNOWN) [Suspect]
     Active Substance: GLIMEPIRIDE
     Dosage: 1 MG, DAILY
     Route: 048
     Dates: start: 2007
  5. GLIMEPIRIDE (UNKNOWN) [Suspect]
     Active Substance: GLIMEPIRIDE
     Dosage: 1.5 MG, DAILY
     Route: 048

REACTIONS (1)
  - Hypoglycaemic coma [Recovered/Resolved]

NARRATIVE: CASE EVENT DATE: 201309
